FAERS Safety Report 14226962 (Version 1)
Quarter: 2017Q4

REPORT INFORMATION
  Report Type: Spontaneous
  Country: MT (occurrence: MT)
  Receive Date: 20171127
  Receipt Date: 20171127
  Transmission Date: 20180321
  Serious: Yes (Hospitalization)
  Sender: FDA-Public Use
  Company Number: MT-JNJFOC-20171126355

PATIENT
  Age: 96 Year
  Sex: Female

DRUGS (5)
  1. OMEPRAZOLE. [Concomitant]
     Active Substance: OMEPRAZOLE
     Route: 065
  2. NEBILET [Concomitant]
     Active Substance: NEBIVOLOL
     Dosage: (2.5 MG OF SRRR-NEBIVOLOL AND 2.5 MG OF RSSS-NEBIVOLOL) ? TAB DAILY
     Route: 065
  3. FRUSEMIDE [Concomitant]
     Active Substance: FUROSEMIDE
     Route: 065
  4. VALSARTAN. [Concomitant]
     Active Substance: VALSARTAN
     Route: 065
  5. XARELTO [Suspect]
     Active Substance: RIVAROXABAN
     Indication: HEART RATE INCREASED
     Route: 048
     Dates: start: 201707, end: 201709

REACTIONS (4)
  - Fatigue [Unknown]
  - Anaemia [Unknown]
  - Faeces discoloured [Recovered/Resolved]
  - Feeling of despair [Unknown]

NARRATIVE: CASE EVENT DATE: 201709
